FAERS Safety Report 17669938 (Version 1)
Quarter: 2020Q2

REPORT INFORMATION
  Report Type: Spontaneous
  Country: GR (occurrence: GR)
  Receive Date: 20200415
  Receipt Date: 20200415
  Transmission Date: 20200713
  Serious: Yes (Hospitalization, Other)
  Sender: FDA-Public Use
  Company Number: NVSC2020GR099548

PATIENT
  Sex: Male

DRUGS (2)
  1. POMALIDOMIDE [Suspect]
     Active Substance: POMALIDOMIDE
     Indication: PLASMA CELL MYELOMA
     Dosage: 1 DF, QD
     Route: 048
     Dates: start: 20180111, end: 20190125
  2. DEXAMETHASONE. [Suspect]
     Active Substance: DEXAMETHASONE
     Indication: PLASMA CELL MYELOMA
     Route: 065
     Dates: start: 20180111, end: 20190125

REACTIONS (7)
  - Haemoglobin decreased [Unknown]
  - Pneumonia [Unknown]
  - Head injury [Unknown]
  - Subdural haematoma [Unknown]
  - Gastrointestinal haemorrhage [Unknown]
  - Respiratory tract infection [Unknown]
  - Fall [Unknown]
